FAERS Safety Report 26095189 (Version 1)
Quarter: 2025Q4

REPORT INFORMATION
  Report Type: Spontaneous
  Country: SA (occurrence: SA)
  Receive Date: 20251127
  Receipt Date: 20251127
  Transmission Date: 20260118
  Serious: Yes (Other)
  Sender: INVENTIA HEALTHCARE LTD
  Company Number: SA-IHL-000697

PATIENT
  Age: 37 Year
  Sex: Male

DRUGS (2)
  1. FLUOXETINE HYDROCHLORIDE [Suspect]
     Active Substance: FLUOXETINE HYDROCHLORIDE
     Indication: Generalised anxiety disorder
     Route: 065
  2. FLUOXETINE HYDROCHLORIDE [Suspect]
     Active Substance: FLUOXETINE HYDROCHLORIDE
     Indication: Trichotillomania
     Route: 065

REACTIONS (4)
  - Paradoxical drug reaction [Recovering/Resolving]
  - Impaired quality of life [Recovering/Resolving]
  - Irritability [Recovering/Resolving]
  - Impulsive behaviour [Recovering/Resolving]
